FAERS Safety Report 7384672-8 (Version None)
Quarter: 2011Q1

REPORT INFORMATION
  Report Type: 
  Country: None (occurrence: None)
  Receive Date: 20110323
  Receipt Date: 20110309
  Transmission Date: 20110831
  Serious: Yes (Hospitalization)
  Sender: FDA-Public Use
  Company Number: 2011S1000287

PATIENT
  Age: 59 Year
  Sex: Female
  Weight: 60 kg

DRUGS (6)
  1. RESTASIS [Concomitant]
  2. FISH OIL [Concomitant]
  3. LIVALO [Suspect]
     Indication: LOW DENSITY LIPOPROTEIN INCREASED
     Dosage: 2 MG;1X;PO; 2 MG;1X;PO
     Route: 048
     Dates: start: 20110219, end: 20110228
  4. LIVALO [Suspect]
     Indication: LOW DENSITY LIPOPROTEIN INCREASED
     Dosage: 2 MG;1X;PO; 2 MG;1X;PO
     Route: 048
     Dates: start: 20110302, end: 20110303
  5. FOSAMAX [Concomitant]
  6. LEVOTHYROXINE SODIUM [Concomitant]

REACTIONS (4)
  - BLOOD PRESSURE INCREASED [None]
  - SPEECH DISORDER [None]
  - MIGRAINE [None]
  - TREMOR [None]
